FAERS Safety Report 14908509 (Version 2)
Quarter: 2018Q2

REPORT INFORMATION
  Report Type: Spontaneous
  Country: US (occurrence: US)
  Receive Date: 20180517
  Receipt Date: 20180523
  Transmission Date: 20180711
  Serious: No
  Sender: FDA-Public Use
  Company Number: US-PFIZER INC-2018198368

PATIENT
  Age: 38 Year
  Sex: Female
  Weight: 88.45 kg

DRUGS (19)
  1. NALTREXONE [Concomitant]
     Active Substance: NALTREXONE
     Indication: FIBROMYALGIA
     Dosage: 4.5 MG, 1X/DAY, (STARTED TAKING ABOUT A YEAR AGO.)
     Route: 048
  2. MIRTAZAPINE. [Concomitant]
     Active Substance: MIRTAZAPINE
     Indication: NAUSEA
  3. LYRICA [Suspect]
     Active Substance: PREGABALIN
     Dosage: 25 MG, 3X/DAY
     Dates: start: 20180418, end: 20180509
  4. LYRICA [Suspect]
     Active Substance: PREGABALIN
     Dosage: 75 MG, DAILY (25MG TWICE A DAY AND 50MG AT NIGHT)
     Dates: start: 20180509, end: 201805
  5. LYRICA [Suspect]
     Active Substance: PREGABALIN
     Dosage: 50 MG, 2X/DAY
     Dates: start: 20180513
  6. PANTOPRAZOLE [Concomitant]
     Active Substance: PANTOPRAZOLE
     Indication: GASTROINTESTINAL DISORDER
     Dosage: 40 MG, 1X/DAY, (STARTED TAKING SEVERAL YEARS AGO)
     Route: 048
  7. OTEZLA [Concomitant]
     Active Substance: APREMILAST
     Indication: PSORIATIC ARTHROPATHY
  8. MIRTAZAPINE. [Concomitant]
     Active Substance: MIRTAZAPINE
     Indication: ANTIDEPRESSANT THERAPY
     Dosage: 15 MG, 1X/DAY
     Route: 048
     Dates: start: 20180427
  9. LYRICA [Suspect]
     Active Substance: PREGABALIN
     Indication: FIBROMYALGIA
     Dosage: 25 MG, 3X/DAY
     Dates: start: 201703
  10. BISOPROLOL [Concomitant]
     Active Substance: BISOPROLOL
     Indication: ARRHYTHMIA
     Dosage: 10 MG, 1X/DAY, (STARTED TAKING 5 YEARS AGO)
     Route: 048
  11. ESCITALOPRAM [Suspect]
     Active Substance: ESCITALOPRAM OXALATE
  12. LYRICA [Suspect]
     Active Substance: PREGABALIN
     Dosage: 50 MG, 3X/DAY
  13. LYRICA [Suspect]
     Active Substance: PREGABALIN
     Dosage: 50 MG, UNK
     Dates: start: 201804, end: 20180413
  14. LYRICA [Suspect]
     Active Substance: PREGABALIN
     Dosage: 50 MG, 3X/DAY
     Dates: start: 20180511, end: 201805
  15. OTEZLA [Concomitant]
     Active Substance: APREMILAST
     Indication: PSORIASIS
     Dosage: 30 MG, 2X/DAY, (STARTED APPROXIMATELY 3 YEARS AGO.)
     Route: 048
  16. NALTREXONE [Concomitant]
     Active Substance: NALTREXONE
     Indication: PSORIATIC ARTHROPATHY
  17. ESCITALOPRAM [Concomitant]
     Active Substance: ESCITALOPRAM OXALATE
     Indication: ANXIETY
     Dosage: 5 MG, 1X/DAY
     Route: 048
  18. VITAMIN D [Concomitant]
     Active Substance: CHOLECALCIFEROL
     Indication: VITAMIN D DECREASED
     Dosage: 2000 IU, 1X/DAY, (STARTED TAKING ABOUT 2 YEARS AGO)
     Route: 048
  19. METOCLOPRAMIDE. [Concomitant]
     Active Substance: METOCLOPRAMIDE
     Indication: IMPAIRED GASTRIC EMPTYING
     Dosage: 10 MG, 2X/DAY, (STARTED TAKING 2 YEARS AGO.)
     Route: 048

REACTIONS (12)
  - Hypotension [Unknown]
  - Pain [Not Recovered/Not Resolved]
  - Abdominal discomfort [Not Recovered/Not Resolved]
  - Intentional product use issue [Unknown]
  - Drug dispensing error [Unknown]
  - Drug dose omission [Unknown]
  - Retching [Unknown]
  - Nausea [Not Recovered/Not Resolved]
  - Hypersomnia [Unknown]
  - Fatigue [Not Recovered/Not Resolved]
  - Cyclic vomiting syndrome [Unknown]
  - Diarrhoea [Unknown]

NARRATIVE: CASE EVENT DATE: 20171227
